FAERS Safety Report 25669531 (Version 1)
Quarter: 2025Q3

REPORT INFORMATION
  Report Type: Spontaneous
  Country: US (occurrence: US)
  Receive Date: 20250812
  Receipt Date: 20250812
  Transmission Date: 20251020
  Serious: No
  Sender: DR REDDYS
  Company Number: US-DRL-USA-USA/2025/07/010873

PATIENT
  Age: 63 Year
  Sex: Male
  Weight: 94.347 kg

DRUGS (1)
  1. FLUOROURACIL [Suspect]
     Active Substance: FLUOROURACIL
     Indication: Basal cell carcinoma
     Dosage: SERIAL NUMBER: HRR9MJ3KT5QJ?THE PRODUCT WAS PRESCRIBED FOR BASAL CELL CARCINOMA APPLIED BELOW THE RI
     Route: 061
     Dates: start: 20250619

REACTIONS (1)
  - Metamorphopsia [Not Recovered/Not Resolved]

NARRATIVE: CASE EVENT DATE: 20250715
